FAERS Safety Report 19076810 (Version 3)
Quarter: 2021Q2

REPORT INFORMATION
  Report Type: Report from Study
  Country: EG (occurrence: EG)
  Receive Date: 20210331
  Receipt Date: 20210409
  Transmission Date: 20210717
  Serious: Yes (Other)
  Sender: FDA-Public Use
  Company Number: NVSC2021EG070406

PATIENT
  Age: 11 Year
  Sex: Male
  Weight: 42 kg

DRUGS (1)
  1. OMNITROPE [Suspect]
     Active Substance: SOMATROPIN
     Indication: GROWTH HORMONE DEFICIENCY
     Dosage: 3 MG, QD (STARTED WITH 1.5 MG/DAY THEN ELEVATED GRADUALLY)
     Route: 058
     Dates: start: 20190529, end: 201912

REACTIONS (5)
  - Headache [Recovering/Resolving]
  - Hyperthyroidism [Recovering/Resolving]
  - Vision blurred [Recovering/Resolving]
  - Memory impairment [Recovering/Resolving]
  - Delayed puberty [Not Recovered/Not Resolved]

NARRATIVE: CASE EVENT DATE: 201912
